FAERS Safety Report 14452539 (Version 7)
Quarter: 2018Q3

REPORT INFORMATION
  Report Type: Report from Study
  Country: CO (occurrence: CO)
  Receive Date: 20180129
  Receipt Date: 20180828
  Transmission Date: 20181010
  Serious: Yes (Hospitalization, Other)
  Sender: FDA-Public Use
  Company Number: CO-ASTELLAS-2017US047621

PATIENT
  Age: 78 Year
  Sex: Male

DRUGS (3)
  1. ENZALUTAMIDE [Suspect]
     Active Substance: ENZALUTAMIDE
     Route: 048
  2. ENZALUTAMIDE [Suspect]
     Active Substance: ENZALUTAMIDE
     Route: 048
     Dates: end: 20180212
  3. ENZALUTAMIDE [Suspect]
     Active Substance: ENZALUTAMIDE
     Indication: HORMONE-REFRACTORY PROSTATE CANCER
     Route: 048
     Dates: start: 20171005, end: 20171107

REACTIONS (23)
  - Cough [Not Recovered/Not Resolved]
  - Back pain [Recovering/Resolving]
  - Decreased appetite [Not Recovered/Not Resolved]
  - Pain [Recovered/Resolved]
  - Pain [Not Recovered/Not Resolved]
  - Dyspnoea [Unknown]
  - Nausea [Not Recovered/Not Resolved]
  - Mobility decreased [Not Recovered/Not Resolved]
  - Headache [Not Recovered/Not Resolved]
  - Aphonia [Not Recovered/Not Resolved]
  - Paralysis [Not Recovered/Not Resolved]
  - Muscular weakness [Not Recovered/Not Resolved]
  - Pain [Not Recovered/Not Resolved]
  - Arthralgia [Recovering/Resolving]
  - Insomnia [Not Recovered/Not Resolved]
  - Tachycardia [Not Recovered/Not Resolved]
  - Feeling abnormal [Not Recovered/Not Resolved]
  - Fatigue [Not Recovered/Not Resolved]
  - Pain [Recovering/Resolving]
  - Neck pain [Recovering/Resolving]
  - Gait disturbance [Unknown]
  - Decreased appetite [Unknown]
  - Balance disorder [Unknown]

NARRATIVE: CASE EVENT DATE: 20171014
